APPROVED DRUG PRODUCT: PHENYTOIN SODIUM
Active Ingredient: PHENYTOIN SODIUM
Strength: 100MG PROMPT
Dosage Form/Route: CAPSULE;ORAL
Application: A085435 | Product #001
Applicant: PHARMERAL INC
Approved: Approved Prior to Jan 1, 1982 | RLD: No | RS: No | Type: DISCN